FAERS Safety Report 7817485-0 (Version None)
Quarter: 2011Q4

REPORT INFORMATION
  Report Type: 
  Country: None (occurrence: None)
  Receive Date: 20111017
  Receipt Date: 20111004
  Transmission Date: 20120403
  Serious: Yes (Other)
  Sender: FDA-Public Use
  Company Number: US-ROCHE-788241

PATIENT
  Sex: Male
  Weight: 63.56 kg

DRUGS (1)
  1. ACCUTANE [Suspect]
     Indication: ACNE
     Route: 065
     Dates: start: 19960901, end: 19970101

REACTIONS (9)
  - IRRITABLE BOWEL SYNDROME [None]
  - INFLAMMATORY BOWEL DISEASE [None]
  - ANXIETY [None]
  - INSOMNIA [None]
  - COLITIS ULCERATIVE [None]
  - DEPRESSION [None]
  - AMNESIA [None]
  - SUICIDAL IDEATION [None]
  - TREMOR [None]
